FAERS Safety Report 9815371 (Version 2)
Quarter: 2014Q1

REPORT INFORMATION
  Report Type: Spontaneous
  Country: DE (occurrence: DE)
  Receive Date: 20140114
  Receipt Date: 20140114
  Transmission Date: 20141002
  Serious: Yes (Hospitalization)
  Sender: FDA-Public Use
  Company Number: DE-AMGEN-DEUSP2014000867

PATIENT
  Age: 73 Year
  Sex: Female
  Weight: 74 kg

DRUGS (4)
  1. PROLIA [Suspect]
     Indication: OSTEOPOROSIS POSTMENOPAUSAL
     Dosage: 60 MG, Q6MO
     Route: 058
     Dates: start: 201303, end: 201303
  2. VIGANTOLETTEN [Concomitant]
     Indication: OSTEOPOROSIS
     Dosage: 500 UNK, QD
     Route: 048
     Dates: start: 201101
  3. SIMVASTATIN [Concomitant]
     Indication: DYSLIPIDAEMIA
     Dosage: 20 UNK, QD
     Route: 048
     Dates: start: 200909
  4. ARLEVERT [Concomitant]
     Indication: VERTIGO
     Route: 048

REACTIONS (4)
  - Diverticulitis [Recovered/Resolved]
  - Photosensitivity reaction [Not Recovered/Not Resolved]
  - Rash [Not Recovered/Not Resolved]
  - Adverse drug reaction [Unknown]
